FAERS Safety Report 25170288 (Version 2)
Quarter: 2025Q2

REPORT INFORMATION
  Report Type: Spontaneous
  Country: US (occurrence: US)
  Receive Date: 20250408
  Receipt Date: 20250621
  Transmission Date: 20250717
  Serious: No
  Sender: ALEXION PHARMACEUTICALS
  Company Number: US-AstraZeneca-CH-00842966AP

PATIENT
  Age: 66 Year

DRUGS (2)
  1. BREZTRI [Suspect]
     Active Substance: BUDESONIDE\FORMOTEROL\GLYCOPYRROLATE
     Indication: Asthma
     Dosage: UNK UNK, BID (STRENGTH: 160 MICROGRAMS)
     Route: 065
  2. BREZTRI [Suspect]
     Active Substance: BUDESONIDE\FORMOTEROL\GLYCOPYRROLATE
     Dosage: UNK UNK, QD, (STRENGTH: 160 MICROGRAMS)
     Route: 065

REACTIONS (7)
  - Off label use [Unknown]
  - Dysphonia [Unknown]
  - Device delivery system issue [Unknown]
  - Drug ineffective [Unknown]
  - Wheezing [Unknown]
  - Product dose omission issue [Unknown]
  - Asthma [Unknown]
